FAERS Safety Report 12491237 (Version 1)
Quarter: 2016Q2

REPORT INFORMATION
  Report Type: Spontaneous
  Country: US (occurrence: None)
  Receive Date: 20160622
  Receipt Date: 20160622
  Transmission Date: 20160815
  Serious: Yes (Death)
  Sender: FDA-Public Use
  Company Number: None

PATIENT
  Age: 66 Year
  Sex: Female
  Weight: 49.9 kg

DRUGS (2)
  1. AUBAGIO [Suspect]
     Active Substance: TERIFLUNOMIDE
     Indication: MULTIPLE SCLEROSIS
     Dates: start: 201405, end: 201410
  2. TECFIDERA [Concomitant]
     Active Substance: DIMETHYL FUMARATE
     Indication: MULTIPLE SCLEROSIS
     Dosage: 7DAYS?R14007  90 DAYS
     Dates: start: 20130722, end: 20140118

REACTIONS (18)
  - Hypoaesthesia [None]
  - Cerebral haemorrhage [None]
  - Rash [None]
  - Pharyngeal oedema [None]
  - Ketoacidosis [None]
  - Headache [None]
  - Nausea [None]
  - Paraesthesia [None]
  - Hypertension [None]
  - Pain in extremity [None]
  - Loss of consciousness [None]
  - Fatigue [None]
  - Insomnia [None]
  - Back pain [None]
  - Erythema [None]
  - Speech disorder [None]
  - Myocardial infarction [None]
  - Diarrhoea [None]

NARRATIVE: CASE EVENT DATE: 20141107
